FAERS Safety Report 15754151 (Version 1)
Quarter: 2018Q4

REPORT INFORMATION
  Report Type: Spontaneous
  Country: US (occurrence: US)
  Receive Date: 20181223
  Receipt Date: 20181223
  Transmission Date: 20190205
  Serious: No
  Sender: FDA-Public Use
  Company Number: US-TEVA-2018-US-982319

PATIENT
  Age: 68 Year
  Sex: Female
  Weight: 50 kg

DRUGS (5)
  1. NUVIGIL [Suspect]
     Active Substance: ARMODAFINIL
     Dosage: 1/2 TABLET
     Route: 065
     Dates: start: 20181113
  2. TRINTELLIX [Concomitant]
     Active Substance: VORTIOXETINE HYDROBROMIDE
     Route: 065
  3. BUPROPION. [Concomitant]
     Active Substance: BUPROPION
     Route: 065
  4. NUVIGIL [Suspect]
     Active Substance: ARMODAFINIL
     Indication: DEPRESSION
     Dosage: 1/3RD TABLET
     Route: 065
     Dates: start: 20181113
  5. VITAMIN D [Concomitant]
     Active Substance: CHOLECALCIFEROL
     Route: 065

REACTIONS (4)
  - Tremor [Unknown]
  - Product use in unapproved indication [Unknown]
  - Bruxism [Unknown]
  - Movement disorder [Unknown]

NARRATIVE: CASE EVENT DATE: 20181113
